FAERS Safety Report 8191842-8 (Version None)
Quarter: 2012Q1

REPORT INFORMATION
  Report Type: 
  Country: None (occurrence: None)
  Receive Date: 20120307
  Receipt Date: 20120228
  Transmission Date: 20120608
  Serious: Yes (Other)
  Sender: FDA-Public Use
  Company Number: PHHY2011CA82381

PATIENT
  Sex: Male

DRUGS (1)
  1. SANDOSTATIN LAR [Suspect]
     Indication: CARCINOID TUMOUR
     Dosage: 30 MG, QMO
     Route: 030
     Dates: start: 20070315

REACTIONS (9)
  - GENERAL PHYSICAL HEALTH DETERIORATION [None]
  - NEOPLASM RECURRENCE [None]
  - GAIT DISTURBANCE [None]
  - LIMB DISCOMFORT [None]
  - NEOPLASM MALIGNANT [None]
  - FATIGUE [None]
  - NAUSEA [None]
  - PAIN IN EXTREMITY [None]
  - NERVOUSNESS [None]
